FAERS Safety Report 9447848 (Version 1)
Quarter: 2013Q3

REPORT INFORMATION
  Report Type: Spontaneous
  Country: US (occurrence: None)
  Receive Date: 20130807
  Receipt Date: 20130807
  Transmission Date: 20140515
  Serious: Yes (Disabling)
  Sender: FDA-Public Use
  Company Number: None

PATIENT
  Age: 16 Year
  Sex: Female
  Weight: 39.92 kg

DRUGS (1)
  1. PREDNISONE [Suspect]
     Indication: ECZEMA
     Route: 048

REACTIONS (8)
  - Palpitations [None]
  - Staphylococcal skin infection [None]
  - Skin exfoliation [None]
  - Erythema [None]
  - Skin exfoliation [None]
  - Skin exfoliation [None]
  - Secretion discharge [None]
  - Therapy cessation [None]
